FAERS Safety Report 20668300 (Version 1)
Quarter: 2022Q2

REPORT INFORMATION
  Report Type: Spontaneous
  Country: IL (occurrence: IL)
  Receive Date: 20220404
  Receipt Date: 20220404
  Transmission Date: 20220721
  Serious: Yes (Congenital Anomaly, Other)
  Sender: FDA-Public Use
  Company Number: IL-MACLEODS PHARMACEUTICALS US LTD-MAC2022035076

PATIENT

DRUGS (1)
  1. OLANZAPINE [Suspect]
     Active Substance: OLANZAPINE
     Indication: Product used for unknown indication
     Dosage: 10 MILLIGRAM, QD
     Route: 064

REACTIONS (3)
  - Atrioventricular septal defect [Recovered/Resolved]
  - Talipes [Recovering/Resolving]
  - Foetal exposure during pregnancy [Unknown]
